FAERS Safety Report 7063694-0 (Version None)
Quarter: 2010Q4

REPORT INFORMATION
  Report Type: 
  Country: None (occurrence: None)
  Receive Date: 20101026
  Receipt Date: 20101014
  Transmission Date: 20110411
  Serious: Yes (Other)
  Sender: FDA-Public Use
  Company Number: BR-US-EMD SERONO, INC.-7016629

PATIENT
  Sex: Female

DRUGS (11)
  1. REBIF [Suspect]
     Indication: PRODUCT USED FOR UNKNOWN INDICATION
     Route: 058
     Dates: start: 20070604, end: 20100830
  2. METFORMIN [Concomitant]
  3. BACLOFEN [Concomitant]
  4. PURAN T4 [Concomitant]
  5. FLUOXETINE [Concomitant]
  6. LACTULONE [Concomitant]
  7. ATENOLOL [Concomitant]
  8. DEXA-CITONEURIN [Concomitant]
  9. CITONEURIN [Concomitant]
  10. ASPIRIN [Concomitant]
  11. OXYBUTYNIN [Concomitant]

REACTIONS (9)
  - CERVICAL CORD COMPRESSION [None]
  - GAIT DISTURBANCE [None]
  - HYPOAESTHESIA [None]
  - HYPOKINESIA [None]
  - INTERVERTEBRAL DISC PROTRUSION [None]
  - MOBILITY DECREASED [None]
  - MUSCULAR WEAKNESS [None]
  - MYELITIS TRANSVERSE [None]
  - URINARY INCONTINENCE [None]
